FAERS Safety Report 10010432 (Version 2)
Quarter: 2014Q2

REPORT INFORMATION
  Report Type: Spontaneous
  Country: US (occurrence: US)
  Receive Date: 20140314
  Receipt Date: 20140421
  Transmission Date: 20141212
  Serious: No
  Sender: FDA-Public Use
  Company Number: US-BIOGENIDEC-2014BI019429

PATIENT
  Age: 70 Year
  Sex: Male

DRUGS (3)
  1. AVONEX [Suspect]
     Indication: MULTIPLE SCLEROSIS
     Route: 030
  2. AVONEX [Suspect]
     Indication: MULTIPLE SCLEROSIS
     Route: 030
     Dates: start: 20120817, end: 20131220
  3. TECFIDERA [Concomitant]
     Indication: MULTIPLE SCLEROSIS

REACTIONS (9)
  - Peripheral swelling [Recovered/Resolved]
  - Contusion [Recovered/Resolved]
  - Injection site haemorrhage [Recovered/Resolved]
  - Arthropathy [Unknown]
  - Discomfort [Unknown]
  - Erythema [Unknown]
  - Injury associated with device [Unknown]
  - Pain in extremity [Unknown]
  - Muscular weakness [Unknown]
